FAERS Safety Report 9626679 (Version 1)
Quarter: 2013Q4

REPORT INFORMATION
  Report Type: Spontaneous
  Country: US (occurrence: US)
  Receive Date: 20131016
  Receipt Date: 20131016
  Transmission Date: 20140711
  Serious: No
  Sender: FDA-Public Use
  Company Number: US-PFIZER INC-2013295606

PATIENT
  Age: 54 Year
  Sex: Female
  Weight: 74.83 kg

DRUGS (11)
  1. LYRICA [Suspect]
     Indication: FIBROMYALGIA
     Dosage: 100 MG, 1X/DAY
     Route: 048
     Dates: start: 2013, end: 201310
  2. LYRICA [Suspect]
     Dosage: 75 MG, 1X/DAY
     Route: 048
     Dates: start: 201310
  3. GLIMEPIRIDE [Concomitant]
     Dosage: 4 MG, 1X/DAY
     Route: 048
  4. JANUVIA [Concomitant]
     Dosage: 100 MG, 1X/DAY
  5. METFORMIN [Concomitant]
     Dosage: 1000 MG, 2X/DAY
  6. CLARINEX [Concomitant]
     Dosage: 5 MG, 1X/DAY
  7. ALLOPURINOL [Concomitant]
     Dosage: 100 MG, UNK
  8. SIMVASTATIN [Concomitant]
     Indication: BLOOD CHOLESTEROL INCREASED
     Dosage: 40 MG (BY CUTTING 80MG ORAL TABLET INTO HALF) 1X/DAY
     Route: 048
  9. PROCARDIA [Concomitant]
     Dosage: 30 MG, UNK
  10. HYDROCHLOROTHIAZIDE WITH TRIAMTERENE [Concomitant]
     Indication: DIURETIC THERAPY
     Dosage: 37.5/25 MG, UNK
  11. BENAZEPRIL [Concomitant]
     Dosage: 20 MG, 2X/DAY

REACTIONS (2)
  - Intentional drug misuse [Unknown]
  - Renal disorder [Unknown]
